FAERS Safety Report 7455372-0 (Version None)
Quarter: 2011Q2

REPORT INFORMATION
  Report Type: 
  Country: None (occurrence: None)
  Receive Date: 20110503
  Receipt Date: 20101111
  Transmission Date: 20111010
  Serious: No
  Sender: FDA-Public Use
  Company Number: US-TYCO HEALTHCARE/MALLINCKRODT-T201002265

PATIENT
  Sex: Female
  Weight: 61.224 kg

DRUGS (2)
  1. FLEXERIL [Concomitant]
     Indication: MUSCLE RELAXANT THERAPY
     Dosage: 10 MG, QHS
     Route: 048
  2. ACETAMINOPHEN AND HYDROCODONE BITARTRATE [Suspect]
     Indication: FIBROMYALGIA
     Dosage: ONE QHS  PRN
     Route: 048
     Dates: start: 20101105, end: 20101111

REACTIONS (2)
  - DIZZINESS [None]
  - HEADACHE [None]
